FAERS Safety Report 13392861 (Version 15)
Quarter: 2019Q1

REPORT INFORMATION
  Report Type: Report from Study
  Country: JP (occurrence: JP)
  Receive Date: 20170331
  Receipt Date: 20190228
  Transmission Date: 20190417
  Serious: Yes (Hospitalization, Other)
  Sender: FDA-Public Use
  Company Number: JP-AMGEN-JPNCT2017050149

PATIENT
  Age: 70 Year
  Sex: Male
  Weight: 73.6 kg

DRUGS (35)
  1. PANITUMUMAB [Suspect]
     Active Substance: PANITUMUMAB
     Dosage: 4.8 MG/KG, Q2WK
     Route: 041
     Dates: start: 20170317, end: 20170317
  2. OXALIPLATIN. [Suspect]
     Active Substance: OXALIPLATIN
     Indication: PRODUCT USED FOR UNKNOWN INDICATION
     Dosage: 150 MG, Q2WEEKS
     Route: 041
     Dates: start: 20170210, end: 20170210
  3. OXALIPLATIN. [Suspect]
     Active Substance: OXALIPLATIN
     Dosage: 50 MG/M2, Q2WK
     Route: 041
     Dates: start: 20170317, end: 20170609
  4. PAPAVER SOMNIFERUM TINCTURE [Concomitant]
     Dosage: 1 G, TID
     Route: 048
     Dates: start: 20170201
  5. LIXIANA [Concomitant]
     Active Substance: EDOXABAN TOSYLATE
     Indication: DEEP VEIN THROMBOSIS
     Dosage: 30 MG, QD
     Route: 048
     Dates: start: 20170201
  6. NOVORAPID [Concomitant]
     Active Substance: INSULIN ASPART
     Dosage: 4 IU, BID
     Route: 058
     Dates: end: 20170709
  7. LANTUS [Concomitant]
     Active Substance: INSULIN GLARGINE
     Dosage: 4 INTERNATIONAL UNIT, QD
     Route: 058
     Dates: start: 20170227, end: 20170304
  8. AVAPRO [Concomitant]
     Active Substance: IRBESARTAN
     Dosage: 1 DF, QD
     Route: 048
     Dates: start: 20170107, end: 20170304
  9. PANITUMUMAB [Suspect]
     Active Substance: PANITUMUMAB
     Dosage: 3.6 MG/KG, Q2WK
     Route: 041
     Dates: start: 20170526, end: 20170526
  10. BISOPROLOL FUMARATE. [Concomitant]
     Active Substance: BISOPROLOL FUMARATE
     Dosage: 1 DF, QD
     Route: 048
     Dates: start: 20170107, end: 20170304
  11. BISOPROLOL FUMARATE. [Concomitant]
     Active Substance: BISOPROLOL FUMARATE
     Dosage: 5 MG, QD
     Route: 048
     Dates: start: 20170311, end: 20170709
  12. LIXIANA [Concomitant]
     Active Substance: EDOXABAN TOSYLATE
     Dosage: 30 MG, QD
     Route: 048
     Dates: start: 20170311, end: 20170709
  13. AMLODIPINE [Concomitant]
     Active Substance: AMLODIPINE BESYLATE
     Dosage: 1 DF, QD
     Route: 048
     Dates: start: 20170107, end: 20170304
  14. MINOMYCIN [Concomitant]
     Active Substance: MINOCYCLINE HYDROCHLORIDE
     Dosage: 2 DF, BID
     Route: 048
     Dates: start: 20170210, end: 20170304
  15. OXALIPLATIN. [Suspect]
     Active Substance: OXALIPLATIN
     Dosage: 65 MG/M2, Q2WK
     Route: 041
     Dates: start: 20170224, end: 20170224
  16. BIO-THREE [Concomitant]
     Active Substance: HERBALS
     Dosage: 2 DOSAGE FORM, TID
     Route: 048
     Dates: start: 20170107
  17. BIO-THREE [Concomitant]
     Active Substance: HERBALS
     Dosage: 2 DF, TID
     Route: 048
     Dates: start: 20170310, end: 20170709
  18. NOVORAPID [Concomitant]
     Active Substance: INSULIN ASPART
     Indication: DIABETES MELLITUS
     Dosage: 4 IU, TID
     Route: 058
     Dates: start: 20170128, end: 20170304
  19. LANTUS [Concomitant]
     Active Substance: INSULIN GLARGINE
     Dosage: 2 INTERNATIONAL UNIT, QD
     Route: 058
     Dates: end: 20170709
  20. PHELLOBERIN [Concomitant]
     Active Substance: BERBERINE\GERANIUM
     Dosage: 2 DF, TID
     Route: 048
     Dates: start: 20170127
  21. PANITUMUMAB [Suspect]
     Active Substance: PANITUMUMAB
     Dosage: 3.6 MG/KG, Q2WK
     Route: 041
     Dates: start: 20170414, end: 20170414
  22. 5-FU [Suspect]
     Active Substance: FLUOROURACIL
     Indication: PRODUCT USED FOR UNKNOWN INDICATION
     Dosage: 700 MG, Q2WK
     Route: 040
     Dates: start: 20170210, end: 20170210
  23. 5-FU [Suspect]
     Active Substance: FLUOROURACIL
     Dosage: 2000 MG/M2, Q2WK
     Route: 041
     Dates: start: 20170224, end: 20170224
  24. 5-FU [Suspect]
     Active Substance: FLUOROURACIL
     Dosage: 1600 MG/M2, Q2WK
     Route: 041
     Dates: start: 20170317, end: 20170609
  25. FUROSEMIDE. [Concomitant]
     Active Substance: FUROSEMIDE
     Dosage: 10 MG, QD
     Route: 048
     Dates: start: 20170526, end: 20170709
  26. PHELLOBERIN [Concomitant]
     Active Substance: BERBERINE\GERANIUM
     Dosage: 2 DF, TID
     Route: 048
     Dates: start: 20170310, end: 20170709
  27. 5-FU [Suspect]
     Active Substance: FLUOROURACIL
     Dosage: 200 MG/M2, Q2WK
     Route: 040
     Dates: start: 20170224, end: 20170224
  28. PANITUMUMAB [Suspect]
     Active Substance: PANITUMUMAB
     Indication: PRODUCT USED FOR UNKNOWN INDICATION
     Dosage: 440 MG, Q2WK
     Route: 041
     Dates: start: 20170210, end: 20170224
  29. PAPAVER SOMNIFERUM TINCTURE [Concomitant]
     Dosage: 1 G, TID
     Route: 048
     Dates: start: 20170310, end: 20170709
  30. URSODEOXYCHOLIC ACID [Concomitant]
     Active Substance: URSODIOL
     Dosage: 100 MG, TID
     Route: 048
     Dates: start: 20170623, end: 20170709
  31. TAKECAB [Concomitant]
     Active Substance: VONOPRAZAN FUMURATE
     Indication: PROPHYLAXIS
     Dosage: 2 DF, QD
     Route: 048
     Dates: start: 20170210, end: 20170304
  32. TAKECAB [Concomitant]
     Active Substance: VONOPRAZAN FUMURATE
     Dosage: 10 MG, BID
     Route: 048
     Dates: start: 20170714
  33. 5-FU [Suspect]
     Active Substance: FLUOROURACIL
     Dosage: 4350 MG, Q2WK
     Route: 041
     Dates: start: 20170210, end: 20170210
  34. CALCIUM LEVOFOLINATE [Concomitant]
     Active Substance: LEVOLEUCOVORIN CALCIUM
     Indication: RECTOSIGMOID CANCER
     Dosage: 350 MG, Q2WK
     Route: 041
     Dates: start: 20170210, end: 20170609
  35. TAKECAB [Concomitant]
     Active Substance: VONOPRAZAN FUMURATE
     Dosage: 1 DF, QD
     Route: 048
     Dates: end: 20170709

REACTIONS (20)
  - Alanine aminotransferase increased [Recovered/Resolved]
  - Paronychia [Recovered/Resolved]
  - Renal impairment [Recovered/Resolved]
  - Platelet count decreased [Recovered/Resolved]
  - Decreased appetite [Recovered/Resolved]
  - Hypomagnesaemia [Recovered/Resolved]
  - Diarrhoea [Recovered/Resolved]
  - Spinal compression fracture [Recovering/Resolving]
  - Aspartate aminotransferase increased [Recovered/Resolved]
  - Dermatitis acneiform [Recovered/Resolved]
  - Anaemia [Not Recovered/Not Resolved]
  - Acute kidney injury [Recovered/Resolved]
  - Hyponatraemia [Recovered/Resolved]
  - Alanine aminotransferase increased [Recovered/Resolved]
  - Dry skin [Recovered/Resolved]
  - Hypokalaemia [Recovered/Resolved]
  - Hyperkalaemia [Recovered/Resolved]
  - Aspartate aminotransferase increased [Recovered/Resolved]
  - Gastrointestinal haemorrhage [Recovered/Resolved]
  - Malaise [Recovered/Resolved]

NARRATIVE: CASE EVENT DATE: 20170305
